FAERS Safety Report 7260838-2 (Version None)
Quarter: 2011Q1

REPORT INFORMATION
  Report Type: 
  Country: None (occurrence: None)
  Receive Date: 20110128
  Receipt Date: 20110128
  Transmission Date: 20110831
  Serious: Yes (Other)
  Sender: FDA-Public Use
  Company Number: None

PATIENT
  Age: 39 Year
  Sex: Male
  Weight: 113.3993 kg

DRUGS (1)
  1. TRIAD ALCOHOL PREP PAD [Suspect]
     Indication: PRURITUS
     Dosage: 1 PAD 1 MINUTE
     Dates: start: 20110125, end: 20110125

REACTIONS (1)
  - PRODUCT CONTAMINATION [None]
